FAERS Safety Report 21767106 (Version 4)
Quarter: 2023Q1

REPORT INFORMATION
  Report Type: Spontaneous
  Country: KR (occurrence: KR)
  Receive Date: 20221222
  Receipt Date: 20230227
  Transmission Date: 20230417
  Serious: No
  Sender: FDA-Public Use
  Company Number: KR-PFIZER INC-PV202200125870

PATIENT
  Age: 12 Year
  Sex: Male

DRUGS (1)
  1. GENOTROPIN [Suspect]
     Active Substance: SOMATROPIN
     Indication: Short stature
     Dosage: 5.3 IU, 6 TIMES A WEEK
     Dates: start: 20210713

REACTIONS (2)
  - Poor quality device used [Unknown]
  - Device issue [Unknown]
